FAERS Safety Report 21540981 (Version 1)
Quarter: 2022Q4

REPORT INFORMATION
  Report Type: Spontaneous
  Country: IE (occurrence: IE)
  Receive Date: 20221102
  Receipt Date: 20221102
  Transmission Date: 20230113
  Serious: Yes (Other)
  Sender: FDA-Public Use
  Company Number: IE-ENDO PHARMACEUTICALS INC-2022-006021

PATIENT
  Age: 10 Year
  Sex: Male

DRUGS (1)
  1. AVEED [Suspect]
     Active Substance: TESTOSTERONE UNDECANOATE
     Indication: Primary hypogonadism
     Dosage: 250 MG, Q12W
     Route: 030

REACTIONS (3)
  - Central serous chorioretinopathy [Recovered/Resolved]
  - Blood testosterone increased [Unknown]
  - Off label use [Recovered/Resolved]
